FAERS Safety Report 10534689 (Version 2)
Quarter: 2015Q2

REPORT INFORMATION
  Report Type: Spontaneous
  Country: US (occurrence: US)
  Receive Date: 20141022
  Receipt Date: 20150609
  Transmission Date: 20150821
  Serious: Yes (Hospitalization, Other)
  Sender: FDA-Public Use
  Company Number: US-GLAXOSMITHKLINE-US2014GSK009425

PATIENT
  Age: 82 Year
  Sex: Female

DRUGS (13)
  1. METOPROLOL [Concomitant]
     Active Substance: METOPROLOL
  2. GABAPENTIN. [Concomitant]
     Active Substance: GABAPENTIN
  3. PANTOPRAZOLE [Concomitant]
     Active Substance: PANTOPRAZOLE SODIUM
  4. CLOPIDOGREL [Concomitant]
     Active Substance: CLOPIDOGREL BISULFATE
  5. OXYBUTYNIN [Concomitant]
     Active Substance: OXYBUTYNIN
  6. ATORVASTATIN [Concomitant]
     Active Substance: ATORVASTATIN
  7. PREDNISONE. [Concomitant]
     Active Substance: PREDNISONE
  8. LEVOTHYROXINE [Concomitant]
     Active Substance: LEVOTHYROXINE
  9. ADVAIR DISKUS [Suspect]
     Active Substance: FLUTICASONE PROPIONATE\SALMETEROL XINAFOATE
     Dosage: 100/50 UG
  10. DIGOXIN. [Concomitant]
     Active Substance: DIGOXIN
  11. NASONEX [Concomitant]
     Active Substance: MOMETASONE FUROATE
  12. ADVAIR DISKUS [Suspect]
     Active Substance: FLUTICASONE PROPIONATE\SALMETEROL XINAFOATE
     Indication: CHRONIC OBSTRUCTIVE PULMONARY DISEASE
     Dosage: 1 PUFF(S), ONCE OR TWICE DAILY
     Route: 055
  13. ALPRAZOLAM. [Concomitant]
     Active Substance: ALPRAZOLAM

REACTIONS (8)
  - Rehabilitation therapy [Unknown]
  - Myocardial infarction [Recovering/Resolving]
  - Deafness bilateral [Unknown]
  - Dysphonia [Not Recovered/Not Resolved]
  - Respiratory arrest [Unknown]
  - Pneumonia [Unknown]
  - Memory impairment [Unknown]
  - Speech disorder [Not Recovered/Not Resolved]

NARRATIVE: CASE EVENT DATE: 2013
